FAERS Safety Report 15781274 (Version 1)
Quarter: 2019Q1

REPORT INFORMATION
  Report Type: Spontaneous
  Country: US (occurrence: US)
  Receive Date: 20190102
  Receipt Date: 20190102
  Transmission Date: 20190417
  Serious: No
  Sender: FDA-Public Use
  Company Number: US-SA-2018SA394789

PATIENT
  Age: 73 Year
  Sex: Male

DRUGS (1)
  1. ACT TOTAL CARE DRY MOUTH ANTICAVITY MOUTH [Suspect]
     Active Substance: SODIUM FLUORIDE
     Indication: DRY MOUTH
     Dosage: UNK UNK, UNK
     Route: 065

REACTIONS (1)
  - Drug ineffective [Unknown]
